FAERS Safety Report 12732700 (Version 1)
Quarter: 2016Q3

REPORT INFORMATION
  Report Type: Spontaneous
  Country: CA (occurrence: CA)
  Receive Date: 20160912
  Receipt Date: 20160912
  Transmission Date: 20161109
  Serious: Yes (Other)
  Sender: FDA-Public Use
  Company Number: CA-TEVA-692127USA

PATIENT
  Sex: Female

DRUGS (2)
  1. LEVONORGESTREL. [Suspect]
     Active Substance: LEVONORGESTREL
     Route: 048
     Dates: start: 20160807, end: 20160807
  2. LEVONORGESTREL. [Suspect]
     Active Substance: LEVONORGESTREL
     Route: 048
     Dates: start: 20160804, end: 20160804

REACTIONS (3)
  - Haemorrhage [Recovered/Resolved]
  - Inappropriate schedule of drug administration [Unknown]
  - Menstruation delayed [Not Recovered/Not Resolved]
